FAERS Safety Report 8294089-X (Version None)
Quarter: 2012Q2

REPORT INFORMATION
  Report Type: 
  Country: None (occurrence: None)
  Receive Date: 20120418
  Receipt Date: 20120410
  Transmission Date: 20120825
  Serious: Yes (Other)
  Sender: FDA-Public Use
  Company Number: US-BAYER-2011-117715

PATIENT
  Age: 18 Year
  Sex: Female
  Weight: 50.794 kg

DRUGS (8)
  1. ACETAMINOPHEN [Concomitant]
     Route: 048
  2. VICODIN [Concomitant]
  3. DARVOCET [Concomitant]
     Dosage: UNK
     Route: 048
     Dates: start: 20090924
  4. YAZ [Suspect]
     Indication: CONTRACEPTION
     Dosage: UNK
     Dates: start: 20071101, end: 20091001
  5. IBUPROFEN (ADVIL) [Concomitant]
     Route: 048
  6. PHENERGAN HCL [Concomitant]
     Dosage: 25 MG, UNK
     Route: 048
     Dates: start: 20090924
  7. CARAFATE [Concomitant]
     Dosage: UNK
     Route: 048
     Dates: start: 20090924
  8. PRILOSEC [Concomitant]

REACTIONS (8)
  - CHOLECYSTITIS [None]
  - GENERAL PHYSICAL HEALTH DETERIORATION [None]
  - PAIN [None]
  - EMOTIONAL DISTRESS [None]
  - ANXIETY [None]
  - MENTAL DISORDER [None]
  - ABDOMINAL PAIN [None]
  - CHOLECYSTITIS CHRONIC [None]
